FAERS Safety Report 5568189-9 (Version None)
Quarter: 2007Q4

REPORT INFORMATION
  Report Type: 
  Country: None (occurrence: None)
  Receive Date: 20071220
  Receipt Date: 20071214
  Transmission Date: 20080405
  Serious: Yes (Hospitalization)
  Sender: FDA-Public Use
  Company Number: US-BRISTOL-MYERS SQUIBB COMPANY-13992474

PATIENT
  Age: 42 Year
  Sex: Female
  Weight: 114 kg

DRUGS (2)
  1. CETUXIMAB [Suspect]
     Indication: CERVIX CARCINOMA
     Dosage: CETUXIMAB 400MG/M2(800MG)-LOADING DOSE;250MG/M2(500MG);250MG/M2%00MG)ON DAY 15. END DATE 21NOV2007
     Dates: start: 20071114, end: 20071114
  2. CISPLATIN [Suspect]
     Indication: CERVIX CARCINOMA
     Dosage: CISPLATIN 30MG/M2(60MG)ON DAY1 + 30MG/M2(60MG)ON DAY 8.
     Dates: start: 20071114, end: 20071114

REACTIONS (3)
  - NAUSEA [None]
  - THROMBOSIS [None]
  - VOMITING [None]
